FAERS Safety Report 5215443-6 (Version None)
Quarter: 2007Q1

REPORT INFORMATION
  Report Type: 
  Country: None (occurrence: None)
  Receive Date: 20070119
  Receipt Date: 20070119
  Transmission Date: 20070707
  Serious: Yes (Hospitalization)
  Sender: FDA-Public Use
  Company Number: None

PATIENT
  Age: 47 Year
  Sex: Female
  Weight: 86.637 kg

DRUGS (9)
  1. LAMOTRIGINE 100MG TABLETS GLAXOSMITHKLINE [Suspect]
     Indication: BIPOLAR DISORDER
     Dosage: 200MG/200MG/300MG AM/NOON/HS PO
     Route: 048
     Dates: start: 20051221, end: 20061215
  2. BUPROPION HCL [Concomitant]
  3. BUPROPION HCL [Concomitant]
  4. CALCIUM /VITAMIN D [Concomitant]
  5. LAMOTRIGINE [Concomitant]
  6. LEVALBUTEROL HCL [Concomitant]
  7. MOMETASONE FUROATE [Concomitant]
  8. SIMVASTATIN [Concomitant]
  9. TRAZODONE HCL [Concomitant]

REACTIONS (3)
  - DIARRHOEA [None]
  - EOSINOPHIL COUNT INCREASED [None]
  - PANCREATITIS [None]
